FAERS Safety Report 7640938-5 (Version None)
Quarter: 2011Q3

REPORT INFORMATION
  Report Type: 
  Country: None (occurrence: None)
  Receive Date: 20110722
  Receipt Date: 20110706
  Transmission Date: 20111222
  Serious: Yes (Disabling)
  Sender: FDA-Public Use
  Company Number: 2011MA008427

PATIENT
  Age: 45 Year
  Sex: Male

DRUGS (3)
  1. PERGOLIDE MESYLATE [Suspect]
     Indication: PARKINSON'S DISEASE
     Dosage: 1000 UG, QD
  2. CARBIDOPA AND LEVODOPA [Suspect]
     Indication: PARKINSON'S DISEASE
     Dosage: 300 MG, QD, PO
     Route: 048
  3. PERGOLIDE MESYLATE [Suspect]
     Indication: PARKINSON'S DISEASE
     Dosage: 1000 UG, QD

REACTIONS (6)
  - DYSKINESIA [None]
  - DYSTONIA [None]
  - PAIN [None]
  - CHOREA [None]
  - DRUG LEVEL DECREASED [None]
  - BALANCE DISORDER [None]
